FAERS Safety Report 6759276-8 (Version None)
Quarter: 2010Q2

REPORT INFORMATION
  Report Type: 
  Country: None (occurrence: None)
  Receive Date: 20100607
  Receipt Date: 20100526
  Transmission Date: 20101027
  Serious: Yes (Other)
  Sender: FDA-Public Use
  Company Number: JP-PFIZER INC-2010060164

PATIENT
  Sex: Male

DRUGS (2)
  1. GENOTROPIN [Suspect]
     Indication: GROWTH HORMONE DEFICIENCY
     Dosage: 0.2 MG, 1X/DAY
     Route: 058
     Dates: start: 20100427, end: 20100101
  2. TESTOSTERONE [Suspect]
     Dosage: UNK
     Dates: start: 20100425, end: 20100101

REACTIONS (1)
  - PSYCHIATRIC SYMPTOM [None]
